FAERS Safety Report 6185008-0 (Version None)
Quarter: 2009Q2

REPORT INFORMATION
  Report Type: 
  Country: None (occurrence: None)
  Receive Date: 20090511
  Receipt Date: 20090325
  Transmission Date: 20091009
  Serious: Yes (Other)
  Sender: FDA-Public Use
  Company Number: A0775337A

PATIENT
  Age: 70 Year
  Sex: Male

DRUGS (5)
  1. COREG CR [Suspect]
     Indication: HYPERTENSION
     Dosage: 80MG PER DAY
     Route: 048
  2. HYZAAR [Concomitant]
  3. JANUVIA [Concomitant]
  4. HYTRIN [Concomitant]
  5. VYTORIN [Concomitant]

REACTIONS (1)
  - ANAEMIA [None]
